FAERS Safety Report 12771151 (Version 5)
Quarter: 2017Q4

REPORT INFORMATION
  Report Type: Spontaneous
  Country: US (occurrence: US)
  Receive Date: 20160922
  Receipt Date: 20171206
  Transmission Date: 20180320
  Serious: No
  Sender: FDA-Public Use
  Company Number: US-TEVA-693354USA

PATIENT
  Sex: Female

DRUGS (37)
  1. TIZANIDINE. [Concomitant]
     Active Substance: TIZANIDINE
     Dates: start: 20160707
  2. MELOXICAM. [Concomitant]
     Active Substance: MELOXICAM
     Dates: start: 20170116
  3. NORCO [Concomitant]
     Active Substance: ACETAMINOPHEN\HYDROCODONE BITARTRATE
     Dosage: 2.5/325 MG
  4. METHYLPREDNISOLONE. [Concomitant]
     Active Substance: METHYLPREDNISOLONE
     Dates: start: 20160324, end: 20161220
  5. ROBAXIN [Concomitant]
     Active Substance: METHOCARBAMOL
     Dates: start: 20150717, end: 20161024
  6. CARISOPRODOL. [Concomitant]
     Active Substance: CARISOPRODOL
     Dates: start: 20160324, end: 20160707
  7. VITAMIN D3 [Concomitant]
     Active Substance: CHOLECALCIFEROL
     Dosage: 5000 UNIT
     Dates: start: 20170925
  8. METHYLPRED [Concomitant]
     Active Substance: METHYLPREDNISOLONE
  9. RANITIDINE. [Concomitant]
     Active Substance: RANITIDINE
     Dates: start: 20170824
  10. AMITRIPTYLINE [Concomitant]
     Active Substance: AMITRIPTYLINE
     Dates: start: 20160902
  11. LIDOCAINE. [Concomitant]
     Active Substance: LIDOCAINE
  12. PANTOPRAZOLE [Concomitant]
     Active Substance: PANTOPRAZOLE
     Dates: start: 20150717
  13. FLUOXETINE [Concomitant]
     Active Substance: FLUOXETINE HYDROCHLORIDE
     Dates: start: 20150914
  14. ZINC 15 [Concomitant]
     Dates: start: 20151102, end: 20160902
  15. GABAPENTIN. [Concomitant]
     Active Substance: GABAPENTIN
     Dates: start: 20160324
  16. BIOTIN [Concomitant]
     Active Substance: BIOTIN
     Dates: start: 20160902
  17. FLONASE [Concomitant]
     Active Substance: FLUTICASONE PROPIONATE
  18. PROTONIX [Concomitant]
     Active Substance: PANTOPRAZOLE SODIUM
     Dates: start: 20170925
  19. PROVIGIL [Concomitant]
     Active Substance: MODAFINIL
     Dates: start: 20161024, end: 20170407
  20. METHYLPREDNISOLONE. [Concomitant]
     Active Substance: METHYLPREDNISOLONE
     Dates: start: 20150717, end: 20160902
  21. VITAMIN D3 [Concomitant]
     Active Substance: CHOLECALCIFEROL
     Dosage: 10000 UNITS
     Dates: start: 20170925
  22. VITAMIN D3 [Concomitant]
     Active Substance: CHOLECALCIFEROL
     Dosage: CHW 400UNIT
     Dates: start: 20150717
  23. HYDROCO [Concomitant]
  24. VITAMIN D [Concomitant]
     Active Substance: CHOLECALCIFEROL
  25. HYDROCODONE BITARTRATE AND ACETAMINOPHEN [Concomitant]
     Active Substance: ACETAMINOPHEN\HYDROCODONE BITARTRATE
     Dosage: 2.5-325
     Dates: start: 20150717
  26. COPAXONE [Suspect]
     Active Substance: GLATIRAMER ACETATE
     Indication: MULTIPLE SCLEROSIS
     Route: 058
     Dates: start: 20160304
  27. AMITRIPTYLINE [Concomitant]
     Active Substance: AMITRIPTYLINE
     Dates: start: 20150717, end: 20160902
  28. VALTREX [Concomitant]
     Active Substance: VALACYCLOVIR HYDROCHLORIDE
     Dates: start: 20150717
  29. LISINOPRIL. [Concomitant]
     Active Substance: LISINOPRIL
     Dates: start: 20151102
  30. MOBIC [Concomitant]
     Active Substance: MELOXICAM
     Dates: start: 20170925
  31. REGLAN [Concomitant]
     Active Substance: METOCLOPRAMIDE HYDROCHLORIDE
     Dates: start: 20150717, end: 20160902
  32. TOPIRAMATE. [Concomitant]
     Active Substance: TOPIRAMATE
     Dates: start: 20150717, end: 20160902
  33. PROVIGIL [Concomitant]
     Active Substance: MODAFINIL
     Dates: start: 20170925
  34. ZYRTEC ALLGY [Concomitant]
  35. VITAMIN B COMPLEX [Concomitant]
     Active Substance: CYANOCOBALAMIN\DEXPANTHENOL\NIACINAMIDE\PYRIDOXINE HYDROCHLORIDE\RIBOFLAVIN 5^-PHOSPHATE SODIUM\THIAMINE HYDROCHLORIDE\VITAMIN B COMPLEX
     Dates: start: 20150717, end: 20160902
  36. BACLOFEN. [Concomitant]
     Active Substance: BACLOFEN
     Dates: start: 20150914, end: 20160902
  37. GABAPENTIN. [Concomitant]
     Active Substance: GABAPENTIN
     Dates: start: 20170925

REACTIONS (10)
  - Diplopia [Unknown]
  - Fall [Not Recovered/Not Resolved]
  - Chest pain [Not Recovered/Not Resolved]
  - Balance disorder [Not Recovered/Not Resolved]
  - Paraesthesia [Not Recovered/Not Resolved]
  - Fatigue [Not Recovered/Not Resolved]
  - Injection site reaction [Not Recovered/Not Resolved]
  - Motor dysfunction [Not Recovered/Not Resolved]
  - Coordination abnormal [Not Recovered/Not Resolved]
  - Hypoaesthesia [Not Recovered/Not Resolved]

NARRATIVE: CASE EVENT DATE: 2016
